FAERS Safety Report 24444156 (Version 2)
Quarter: 2024Q4

REPORT INFORMATION
  Report Type: Report from Study
  Country: ZA (occurrence: ZA)
  Receive Date: 20241016
  Receipt Date: 20241017
  Transmission Date: 20250115
  Serious: No
  Sender: ROCHE
  Company Number: ZA-ROCHE-2656554

PATIENT
  Age: 70 Year
  Sex: Female
  Weight: 90.0 kg

DRUGS (11)
  1. MABTHERA [Suspect]
     Active Substance: RITUXIMAB
     Indication: Rheumatoid arthritis
     Dosage: DAY 0 AND DAY 14 AND THEN EVERY 6 MONTHS
     Route: 042
     Dates: start: 201809
  2. MABTHERA [Suspect]
     Active Substance: RITUXIMAB
     Indication: Interstitial lung disease
     Route: 042
     Dates: start: 20200403
  3. RITUXIMAB [Suspect]
     Active Substance: RITUXIMAB
     Indication: Rheumatoid arthritis
     Dosage: VIALS, EVERY SIX MONTHS
     Route: 041
     Dates: start: 20220510
  4. RITUXIMAB [Suspect]
     Active Substance: RITUXIMAB
     Indication: Systemic lupus erythematosus
  5. RITUXIMAB [Suspect]
     Active Substance: RITUXIMAB
     Indication: Interstitial lung disease
  6. PREDNISONE [Concomitant]
     Active Substance: PREDNISONE
  7. METHOTREXATE [Concomitant]
     Active Substance: METHOTREXATE
     Dates: start: 2015, end: 2015
  8. SULFASALAZINE [Concomitant]
     Active Substance: SULFASALAZINE
     Route: 048
     Dates: start: 2015, end: 2016
  9. CHLOROQUINE [Concomitant]
     Active Substance: CHLOROQUINE
     Dates: start: 2005
  10. AZITHROMYCIN [Concomitant]
     Active Substance: AZITHROMYCIN
     Route: 048
     Dates: start: 2015, end: 2016
  11. ZIDOVUDINE [Concomitant]
     Active Substance: ZIDOVUDINE
     Route: 048
     Dates: start: 2015, end: 2016

REACTIONS (10)
  - Ill-defined disorder [Unknown]
  - C-reactive protein increased [Unknown]
  - Blood creatinine increased [Unknown]
  - Off label use [Unknown]
  - C-reactive protein increased [Unknown]
  - Arthropathy [Unknown]
  - Blood creatinine increased [Unknown]
  - Alanine aminotransferase increased [Unknown]
  - Aspartate aminotransferase increased [Unknown]
  - White blood cell count decreased [Unknown]

NARRATIVE: CASE EVENT DATE: 20200803
